FAERS Safety Report 16472849 (Version 1)
Quarter: 2019Q2

REPORT INFORMATION
  Report Type: Spontaneous
  Country: CA (occurrence: CA)
  Receive Date: 20190625
  Receipt Date: 20190625
  Transmission Date: 20190711
  Serious: Yes (Other)
  Sender: FDA-Public Use
  Company Number: CA-TEVA-2019-CA-1067696

PATIENT
  Sex: Male

DRUGS (1)
  1. ACETAMINOPHEN/OXYCODONE [Suspect]
     Active Substance: ACETAMINOPHEN\OXYCODONE HYDROCHLORIDE
     Indication: PAIN MANAGEMENT
     Route: 065

REACTIONS (25)
  - Overdose [Recovered/Resolved]
  - Economic problem [Recovered/Resolved]
  - Memory impairment [Recovered/Resolved]
  - Mental disorder [Recovered/Resolved]
  - Nightmare [Recovered/Resolved]
  - Pain [Recovered/Resolved]
  - Weight decreased [Recovered/Resolved]
  - Alopecia [Recovered/Resolved]
  - Incontinence [Recovered/Resolved]
  - Paranoia [Recovered/Resolved]
  - Visual impairment [Recovered/Resolved]
  - Decreased appetite [Recovered/Resolved]
  - Dry mouth [Recovered/Resolved]
  - Hyperhidrosis [Recovered/Resolved]
  - Hypoaesthesia [Recovered/Resolved]
  - Mood altered [Recovered/Resolved]
  - Stress [Recovered/Resolved]
  - Abdominal rigidity [Recovered/Resolved]
  - Dementia [Recovered/Resolved]
  - Feeling abnormal [Recovered/Resolved]
  - Insomnia [Recovered/Resolved]
  - Personality change [Recovered/Resolved]
  - Anxiety [Recovered/Resolved]
  - Drug ineffective [Recovered/Resolved]
  - Personal relationship issue [Recovered/Resolved]
